FAERS Safety Report 21593826 (Version 2)
Quarter: 2022Q4

REPORT INFORMATION
  Report Type: Spontaneous
  Country: RU (occurrence: None)
  Receive Date: 20221115
  Receipt Date: 20221202
  Transmission Date: 20230113
  Serious: Yes (Other)
  Sender: FDA-Public Use
  Company Number: RU-ROCHE-3218015

PATIENT
  Age: 39 Year
  Sex: Male

DRUGS (5)
  1. COBIMETINIB [Suspect]
     Active Substance: COBIMETINIB
     Indication: Metastatic malignant melanoma
     Dosage: ON DAYS 1-21,
     Route: 048
     Dates: start: 20221103
  2. VEMURAFENIB [Suspect]
     Active Substance: VEMURAFENIB
     Indication: Metastatic malignant melanoma
     Route: 048
     Dates: start: 20221103
  3. NEVANAC [Concomitant]
     Active Substance: NEPAFENAC
     Route: 050
  4. AFOBAZOLE [Concomitant]
     Dosage: ORALLY AFTER MEALS 10 MG 3 TIMES A DAY FOR 2-4 WEEKS
     Route: 048
  5. PEMBROLIZUMAB [Concomitant]
     Active Substance: PEMBROLIZUMAB
     Dosage: 400 MG IV, 42-DAY CYCLE UP TO 12 MONTHS IN?TOTAL.
     Route: 042

REACTIONS (3)
  - Chorioretinopathy [Unknown]
  - Vision blurred [Unknown]
  - Retinal detachment [Unknown]
